FAERS Safety Report 4527099-6 (Version None)
Quarter: 2004Q4

REPORT INFORMATION
  Report Type: 
  Country: None (occurrence: None)
  Receive Date: 20041129
  Receipt Date: 20040506
  Transmission Date: 20050328
  Serious: Yes (Hospitalization, Other)
  Sender: FDA-Public Use
  Company Number: USA040566945

PATIENT
  Sex: Male

DRUGS (1)
  1. ZYPREXA [Suspect]
     Dosage: 40 MG DAY

REACTIONS (3)
  - COMA [None]
  - DIABETIC KETOACIDOSIS [None]
  - PRESCRIBED OVERDOSE [None]
